FAERS Safety Report 6816899-5 (Version None)
Quarter: 2010Q3

REPORT INFORMATION
  Report Type: 
  Country: None (occurrence: None)
  Receive Date: 20100706
  Receipt Date: 20100628
  Transmission Date: 20110219
  Serious: Yes (Hospitalization)
  Sender: FDA-Public Use
  Company Number: GB-ASTRAZENECA-2010SE30063

PATIENT
  Age: 72 Year
  Sex: Female

DRUGS (14)
  1. MEROPENEM [Suspect]
     Indication: NEUTROPENIC SEPSIS
     Route: 051
     Dates: start: 20100423, end: 20100426
  2. DAPSONE [Suspect]
     Indication: HAIRY CELL LEUKAEMIA
     Route: 048
     Dates: end: 20100426
  3. ASPIRIN [Concomitant]
     Route: 065
  4. CALCICHEW D3 [Concomitant]
     Route: 065
  5. CHONDROITIN [Concomitant]
     Route: 065
  6. GLUCOSAMINE HYDROCHLORIDE [Concomitant]
     Route: 065
  7. ISPAGHULA HUSK [Concomitant]
     Route: 065
  8. LANSOPRAZOLE [Concomitant]
     Route: 065
  9. LEVOTHYROXINE SODIUM [Concomitant]
     Route: 065
  10. ACETAMINOPHEN [Concomitant]
     Route: 065
  11. SIMVASTATIN [Concomitant]
     Route: 065
  12. AMOXICILLIN [Concomitant]
     Indication: ABDOMINAL DISCOMFORT
     Route: 065
  13. FUROSEMIDE [Concomitant]
     Indication: PRURITUS
     Route: 065
  14. SEPTRIN [Concomitant]
     Indication: RASH
     Route: 065

REACTIONS (7)
  - CHILLS [None]
  - EXCORIATION [None]
  - EXFOLIATIVE RASH [None]
  - EYELID MARGIN CRUSTING [None]
  - PYREXIA [None]
  - STAPHYLOCOCCAL SKIN INFECTION [None]
  - TOXIC SKIN ERUPTION [None]
